FAERS Safety Report 15806323 (Version 2)
Quarter: 2019Q3

REPORT INFORMATION
  Report Type: Spontaneous
  Country: US (occurrence: US)
  Receive Date: 20190110
  Receipt Date: 20190911
  Transmission Date: 20191004
  Serious: No
  Sender: FDA-Public Use
  Company Number: US-PFIZER INC-2019009863

PATIENT
  Age: 63 Year
  Sex: Male

DRUGS (2)
  1. RAPAMUNE [Suspect]
     Active Substance: SIROLIMUS
     Indication: LIVER TRANSPLANT
     Dosage: 4 MG, DAILY (TWO 2MG TABLETS BY MOUTH A DAY)
     Route: 048
     Dates: start: 20180629
  2. MYFORTIC [Concomitant]
     Active Substance: MYCOPHENOLATE SODIUM
     Indication: LIVER TRANSPLANT REJECTION
     Dosage: 720 MG, 2X/DAY (FOUR 360MG TABLETS TOTAL)
     Route: 048

REACTIONS (4)
  - Malaise [Recovered/Resolved]
  - Product use in unapproved indication [Unknown]
  - Intentional product use issue [Not Recovered/Not Resolved]
  - Off label use [Unknown]
